FAERS Safety Report 17540660 (Version 1)
Quarter: 2020Q1

REPORT INFORMATION
  Report Type: Spontaneous
  Country: DE (occurrence: DE)
  Receive Date: 20200313
  Receipt Date: 20200313
  Transmission Date: 20200409
  Serious: Yes (Hospitalization, Other)
  Sender: FDA-Public Use
  Company Number: DE-ASTELLAS-2020US008807

PATIENT
  Age: 85 Year
  Sex: Male

DRUGS (5)
  1. DOPAMINE [Concomitant]
     Active Substance: DOPAMINE HYDROCHLORIDE
     Indication: PRODUCT USED FOR UNKNOWN INDICATION
     Route: 065
  2. XTANDI [Suspect]
     Active Substance: ENZALUTAMIDE
     Indication: PROSTATE CANCER
     Dosage: 160 MG, ONCE DAILY (IN THE MORNING)
     Route: 065
     Dates: start: 201910
  3. METFORMIN [Concomitant]
     Active Substance: METFORMIN HYDROCHLORIDE
     Indication: DIABETES MELLITUS
     Dosage: UNK UNK, UNKNOWN FREQ.
     Route: 065
  4. LANTUS [Concomitant]
     Active Substance: INSULIN GLARGINE
     Indication: DIABETES MELLITUS
     Dosage: UNK UNK, UNKNOWN FREQ.
     Route: 065
  5. PLAVIX [Concomitant]
     Active Substance: CLOPIDOGREL BISULFATE
     Indication: ANTICOAGULANT THERAPY
     Dosage: UNK UNK, UNKNOWN FREQ.
     Route: 065
     Dates: end: 201912

REACTIONS (11)
  - Urinary bladder haemorrhage [Recovered/Resolved]
  - Hypertension [Unknown]
  - General physical health deterioration [Unknown]
  - Confusional state [Unknown]
  - Bone disorder [Unknown]
  - Dysuria [Unknown]
  - Bradyphrenia [Unknown]
  - Dysstasia [Unknown]
  - Dementia Alzheimer^s type [Unknown]
  - Arthropathy [Unknown]
  - Fatigue [Unknown]

NARRATIVE: CASE EVENT DATE: 201911
